FAERS Safety Report 5078898-6 (Version None)
Quarter: 2006Q3

REPORT INFORMATION
  Report Type: 
  Country: None (occurrence: None)
  Receive Date: 20060808
  Receipt Date: 20060720
  Transmission Date: 20061208
  Serious: Yes (Hospitalization)
  Sender: FDA-Public Use
  Company Number: US200605006190

PATIENT
  Age: 47 Year
  Sex: Female

DRUGS (13)
  1. XIGRIS [Suspect]
     Dosage: 24 UG, INTRAVENOUS
     Route: 042
  2. REGLAN [Concomitant]
  3. LEXAPRO [Concomitant]
  4. SELENIUM (SELENIUM) [Concomitant]
  5. PREVACID [Concomitant]
  6. SENOKOT [Concomitant]
  7. FERROUS SULFATE TAB [Concomitant]
  8. MAGNESIUM OXIDE (MAGNESIUM OXIDE) [Concomitant]
  9. MEGACE [Concomitant]
  10. MULTIVITAMINS (ASCORBIC ACID, ERGOCALCIFEROL, FOLIC ACID [Concomitant]
  11. ACETAMINOPHEN [Concomitant]
  12. DARVOCET-N                     (PROPOXYPHENE NAPSYLATE) CAPSULE [Concomitant]
  13. BACITRACIN                  (BACITRACIN) [Concomitant]

REACTIONS (30)
  - ACIDOSIS [None]
  - ACUTE RESPIRATORY DISTRESS SYNDROME [None]
  - ARTERIAL OCCLUSIVE DISEASE [None]
  - ATRIAL FIBRILLATION [None]
  - CANDIDA SEROLOGY POSITIVE [None]
  - CANDIDIASIS [None]
  - CARDIOMYOPATHY [None]
  - DIARRHOEA [None]
  - DISSEMINATED INTRAVASCULAR COAGULATION [None]
  - EJECTION FRACTION DECREASED [None]
  - ENDOCARDITIS BACTERIAL [None]
  - FUNGUS SPUTUM TEST POSITIVE [None]
  - GENERAL PHYSICAL HEALTH DETERIORATION [None]
  - HAEMODIALYSIS [None]
  - HAEMOPHILUS INFECTION [None]
  - HERPES ZOSTER [None]
  - HYPERGLYCAEMIA [None]
  - HYPONATRAEMIA [None]
  - HYPOTENSION [None]
  - KLEBSIELLA INFECTION [None]
  - KLEBSIELLA SEPSIS [None]
  - LICE INFESTATION [None]
  - MULTI-ORGAN FAILURE [None]
  - PANCYTOPENIA [None]
  - PNEUMONIA [None]
  - PULMONARY EMBOLISM [None]
  - RENAL FAILURE ACUTE [None]
  - SEPTIC SHOCK [None]
  - STREPTOCOCCAL INFECTION [None]
  - VENTRICULAR DYSFUNCTION [None]
